FAERS Safety Report 17316864 (Version 1)
Quarter: 2020Q1

REPORT INFORMATION
  Report Type: Spontaneous
  Country: DE (occurrence: DE)
  Receive Date: 20200124
  Receipt Date: 20200124
  Transmission Date: 20200409
  Serious: Yes (Other)
  Sender: FDA-Public Use
  Company Number: DE-PFIZER INC-2019405299

PATIENT
  Age: 67 Year
  Sex: Female
  Weight: 54 kg

DRUGS (5)
  1. DEKRISTOL [Concomitant]
     Active Substance: CHOLECALCIFEROL
     Dosage: 20000 IU, CYCLIC, EVERY 4 WEEKS
     Route: 048
  2. DEKRISTOL [Concomitant]
     Active Substance: CHOLECALCIFEROL
     Indication: OSTEOPOROSIS
     Dosage: CYCLIC, EVERY 5 DAYS
     Dates: start: 2019
  3. MAGNESIUM [Concomitant]
     Active Substance: MAGNESIUM
     Dosage: 200 MG, DAILY, FOR 3 WEEKS
     Dates: start: 201910
  4. LORVIQUA [Suspect]
     Active Substance: LORLATINIB
     Indication: LUNG CANCER METASTATIC
     Dosage: 100 MG, 1X/DAY
     Route: 048
     Dates: start: 20190614
  5. PROLIA [Concomitant]
     Active Substance: DENOSUMAB
     Indication: OSTEOPOROSIS
     Dosage: 1DF (1 AMPULE) CYCLIC EVERY 6 MONTHS
     Route: 058
     Dates: start: 2014

REACTIONS (8)
  - Anorectal disorder [Unknown]
  - Dark circles under eyes [Unknown]
  - Paraesthesia [Not Recovered/Not Resolved]
  - Alopecia [Not Recovered/Not Resolved]
  - Sleep disorder [Unknown]
  - Peripheral swelling [Unknown]
  - Limb deformity [Unknown]
  - Weight increased [Unknown]

NARRATIVE: CASE EVENT DATE: 201908
